FAERS Safety Report 15097488 (Version 2)
Quarter: 2018Q3

REPORT INFORMATION
  Report Type: Spontaneous
  Country: JP (occurrence: JP)
  Receive Date: 20180702
  Receipt Date: 20180713
  Transmission Date: 20181010
  Serious: Yes (Other)
  Sender: FDA-Public Use
  Company Number: JP-GLAXOSMITHKLINE-JP2018JPN113165

PATIENT
  Age: 34 Year
  Sex: Male

DRUGS (2)
  1. ZOVIRAX [Suspect]
     Active Substance: ACYCLOVIR
     Indication: HERPES ZOSTER
     Dosage: 500 MG, TID, EVERY EIGHT HOURS
     Route: 041
  2. ZOVIRAX [Suspect]
     Active Substance: ACYCLOVIR
     Indication: HERPES ZOSTER MENINGITIS
     Dosage: 500 MG, BID, EVERY 12 HOURS
     Route: 041

REACTIONS (6)
  - Tubulointerstitial nephritis [Recovered/Resolved]
  - Renal injury [Recovered/Resolved]
  - Renal impairment [Recovered/Resolved]
  - Medication crystals in urine present [Recovered/Resolved]
  - Sterile pyuria [Recovered/Resolved]
  - Nephropathy toxic [Recovered/Resolved]
